FAERS Safety Report 19315487 (Version 2)
Quarter: 2021Q2

REPORT INFORMATION
  Report Type: Spontaneous
  Country: BR (occurrence: BR)
  Receive Date: 20210527
  Receipt Date: 20210616
  Transmission Date: 20210717
  Serious: Yes (Other)
  Sender: FDA-Public Use
  Company Number: BR-AMGEN-BRASP2021078633

PATIENT
  Age: 30 Year
  Sex: Female

DRUGS (2)
  1. BLINCYTO [Suspect]
     Active Substance: BLINATUMOMAB
     Dosage: 28 MICROGRAM, QD, BAG TIME 96H
     Route: 065
     Dates: end: 2021
  2. BLINCYTO [Suspect]
     Active Substance: BLINATUMOMAB
     Indication: B PRECURSOR TYPE ACUTE LEUKAEMIA
     Dosage: 9 MICROGRAM, QD
     Route: 065
     Dates: start: 20210513

REACTIONS (9)
  - Hyperhidrosis [Unknown]
  - Constipation [Recovering/Resolving]
  - Self esteem decreased [Unknown]
  - Abdominal pain [Not Recovered/Not Resolved]
  - Neutropenia [Unknown]
  - Back pain [Unknown]
  - Device delivery system issue [Unknown]
  - Tachycardia [Unknown]
  - Metabolic surgery [Unknown]

NARRATIVE: CASE EVENT DATE: 2021
